FAERS Safety Report 8687156 (Version 2)
Quarter: 2014Q2

REPORT INFORMATION
  Report Type: Report from Study
  Country: US (occurrence: US)
  Receive Date: 20120727
  Receipt Date: 20140613
  Transmission Date: 20141212
  Serious: No
  Sender: FDA-Public Use
  Company Number: PHEH2012US014622

PATIENT
  Sex: Male

DRUGS (16)
  1. TASIGNA [Suspect]
     Indication: CHRONIC MYELOID LEUKAEMIA
     Dosage: 400 MG, Q12H
     Route: 048
     Dates: start: 2009
  2. ASPIRIN [Concomitant]
  3. ALLEGRA [Concomitant]
  4. ZOLOFT [Concomitant]
  5. CRESTOR [Concomitant]
  6. AMIODARONE [Concomitant]
  7. LISINOPRIL [Concomitant]
  8. OMEPRAZOLE [Concomitant]
  9. METOPROLOL [Concomitant]
  10. WARFARIN [Concomitant]
  11. DOCUSATE [Concomitant]
  12. CHERATUSSIN [Concomitant]
  13. RESTASIS [Concomitant]
  14. ENABLEX [Concomitant]
  15. FEXOFENADINE [Concomitant]
  16. DOCU [Concomitant]

REACTIONS (3)
  - Bone pain [Not Recovered/Not Resolved]
  - Rash [Recovered/Resolved]
  - Alopecia [Not Recovered/Not Resolved]
